FAERS Safety Report 10017197 (Version 2)
Quarter: 2014Q1

REPORT INFORMATION
  Report Type: Spontaneous
  Country: US (occurrence: US)
  Receive Date: 20140318
  Receipt Date: 20140320
  Transmission Date: 20141002
  Serious: Yes (Death, Life-Threatening, Hospitalization, Other)
  Sender: FDA-Public Use
  Company Number: US-ASTRAZENECA-2014SE17499

PATIENT
  Age: 43 Year
  Sex: Male

DRUGS (3)
  1. BRILINTA [Suspect]
     Indication: CARDIOVASCULAR EVENT PROPHYLAXIS
     Dosage: 180 MILLIGRAMS, LOADING DOSE
     Route: 048
  2. BRILINTA [Suspect]
     Indication: CARDIOVASCULAR EVENT PROPHYLAXIS
     Route: 048
  3. ASPIRIN [Concomitant]

REACTIONS (4)
  - Terminal state [Fatal]
  - Thrombosis in device [Not Recovered/Not Resolved]
  - Circumstance or information capable of leading to medication error [Unknown]
  - Drug dose omission [Unknown]
